FAERS Safety Report 21638422 (Version 2)
Quarter: 2022Q4

REPORT INFORMATION
  Report Type: Spontaneous
  Country: US (occurrence: US)
  Receive Date: 20221124
  Receipt Date: 20221202
  Transmission Date: 20230113
  Serious: Yes (Other)
  Sender: FDA-Public Use
  Company Number: US-PFIZER INC-PV202200109188

PATIENT

DRUGS (4)
  1. BINIMETINIB [Suspect]
     Active Substance: BINIMETINIB
     Indication: Immunomodulatory therapy
     Dosage: UNK
  2. ENCORAFENIB [Suspect]
     Active Substance: ENCORAFENIB
     Indication: Immunomodulatory therapy
     Dosage: UNK
  3. IPILIMUMAB [Suspect]
     Active Substance: IPILIMUMAB
     Indication: Immunomodulatory therapy
     Dosage: UNK
  4. NIVOLUMAB [Suspect]
     Active Substance: NIVOLUMAB
     Indication: Immunomodulatory therapy
     Dosage: UNK

REACTIONS (1)
  - Colitis ulcerative [Unknown]
